FAERS Safety Report 8339021-5 (Version None)
Quarter: 2012Q2

REPORT INFORMATION
  Report Type: 
  Country: None (occurrence: None)
  Receive Date: 20120507
  Receipt Date: 20120426
  Transmission Date: 20120825
  Serious: Yes (Other)
  Sender: FDA-Public Use
  Company Number: GB-BRISTOL-MYERS SQUIBB COMPANY-16549966

PATIENT
  Age: 41 Year
  Sex: Male

DRUGS (3)
  1. DARUNAVIR HYDRATE [Interacting]
  2. RITONAVIR [Interacting]
  3. TRIAMCINOLONE ACETONIDE [Suspect]
     Indication: BACK PAIN
     Dosage: STAT DOSE
     Route: 030

REACTIONS (2)
  - CUSHING'S SYNDROME [None]
  - DRUG INTERACTION [None]
